FAERS Safety Report 5203693-4 (Version None)
Quarter: 2007Q1

REPORT INFORMATION
  Report Type: 
  Country: None (occurrence: None)
  Receive Date: 20070105
  Receipt Date: 20070105
  Transmission Date: 20070707
  Serious: No
  Sender: FDA-Public Use
  Company Number: None

PATIENT
  Sex: Female

DRUGS (2)
  1. MAXAIR [Suspect]
     Indication: ASTHMA
     Dosage: INHALE 2 PUFFS ORALLY TWICE A DAY AS NEEDED
     Route: 055
     Dates: start: 20061216
  2. MAXAIR [Suspect]
     Indication: MULTIPLE ALLERGIES
     Dosage: INHALE 2 PUFFS ORALLY TWICE A DAY AS NEEDED
     Route: 055
     Dates: start: 20061216

REACTIONS (4)
  - DEVICE FAILURE [None]
  - DRUG INEFFECTIVE [None]
  - EXPIRED DRUG ADMINISTERED [None]
  - INCORRECT DOSE ADMINISTERED [None]
